FAERS Safety Report 16354957 (Version 2)
Quarter: 2019Q3

REPORT INFORMATION
  Report Type: Not Available
  Country: FR (occurrence: FR)
  Receive Date: 20190524
  Receipt Date: 20190703
  Transmission Date: 20191004
  Serious: Yes (Other)
  Sender: FDA-Public Use
  Company Number: FR-ANIPHARMA-2019-FR-000112

PATIENT
  Sex: Male
  Weight: 87 kg

DRUGS (5)
  1. PREDNISONE. [Suspect]
     Active Substance: PREDNISONE
     Dosage: 5 MG, QCY (EVERY CYCLE)
     Route: 048
     Dates: start: 20181122, end: 20190502
  2. TRIPTORELIN ACETATE [Suspect]
     Active Substance: TRIPTORELIN ACETATE
     Dosage: 1125 MG, QCY (EVERY CYCLE)
     Route: 042
     Dates: start: 20181025, end: 20181025
  3. ABIRATERONE ACETATE. [Suspect]
     Active Substance: ABIRATERONE ACETATE
     Dosage: 1000 MG, QCY (EVERY CYCLE)
     Route: 065
     Dates: start: 20180502, end: 20181122
  4. BICALUTAMIDE. [Suspect]
     Active Substance: BICALUTAMIDE
     Indication: PROSTATE CANCER METASTATIC
     Dosage: 50 MG, QCY (EVERY CYCLE)
     Route: 048
     Dates: start: 20181025, end: 20181125
  5. DOCETAXEL. [Suspect]
     Active Substance: DOCETAXEL
     Dosage: 150 MG, QCY (EVERY CYCLE)
     Route: 065
     Dates: start: 20181122, end: 20190307

REACTIONS (1)
  - Tendon rupture [Unknown]

NARRATIVE: CASE EVENT DATE: 20190502
